FAERS Safety Report 4754955-6 (Version None)
Quarter: 2005Q3

REPORT INFORMATION
  Report Type: 
  Country: None (occurrence: None)
  Receive Date: 20050829
  Receipt Date: 20050720
  Transmission Date: 20060218
  Serious: Yes (Life-Threatening, Hospitalization)
  Sender: FDA-Public Use
  Company Number: PHBS2005JP10474

PATIENT
  Sex: Male

DRUGS (1)
  1. SANDOSTATIN LAR [Suspect]
     Indication: ACROMEGALY
     Dosage: 20 MG/D
     Route: 030
     Dates: start: 20050301, end: 20050401

REACTIONS (3)
  - CEREBROSPINAL FLUID RHINORRHOEA [None]
  - MENINGITIS [None]
  - SURGERY [None]
